FAERS Safety Report 8485408 (Version 5)
Quarter: 2014Q2

REPORT INFORMATION
  Report Type: Spontaneous
  Country: US (occurrence: US)
  Receive Date: 20120330
  Receipt Date: 20140415
  Transmission Date: 20141212
  Serious: Yes (Hospitalization, Disabling, Other)
  Sender: FDA-Public Use
  Company Number: US-009507513-1203USA03333

PATIENT
  Sex: Female

DRUGS (6)
  1. FOSAMAX [Suspect]
     Indication: OSTEOPOROSIS
     Dosage: 70 MG, QW
     Route: 048
     Dates: start: 20011019, end: 2010
  2. FOSAMAX [Suspect]
     Indication: OSTEOPENIA
     Dosage: 10 MG, UNK
     Route: 048
     Dates: end: 20010918
  3. FOSAMAX [Suspect]
     Indication: OSTEOPENIA
     Dosage: 70 MG, UNK
     Route: 048
     Dates: start: 2010, end: 201107
  4. FOSAMAX PLUS D [Suspect]
     Indication: OSTEOPENIA
     Dosage: 70MG/2800MG QW
     Route: 048
     Dates: start: 20080327, end: 20090327
  5. LEVOTHROID [Concomitant]
     Indication: THYROID DISORDER
     Dosage: UNK
     Route: 048
     Dates: start: 2002, end: 201202
  6. SIMVASTATIN [Concomitant]
     Route: 048
     Dates: end: 201202

REACTIONS (26)
  - Femur fracture [Unknown]
  - Open reduction of fracture [Unknown]
  - Fracture nonunion [Unknown]
  - Medical device removal [Unknown]
  - Anaemia postoperative [Recovered/Resolved]
  - Osteoporosis [Unknown]
  - Stress fracture [Unknown]
  - Femur fracture [Unknown]
  - Fall [Unknown]
  - Adverse drug reaction [Recovered/Resolved]
  - Atrial fibrillation [Recovered/Resolved]
  - Rash pruritic [Recovered/Resolved]
  - Cataract [Unknown]
  - Hyperlipidaemia [Unknown]
  - Haemorrhoids [Unknown]
  - Dental necrosis [Unknown]
  - Tooth fracture [Unknown]
  - Tooth disorder [Unknown]
  - Macular degeneration [Unknown]
  - Hypertension [Unknown]
  - Cellulitis [Unknown]
  - Staphylococcal infection [Unknown]
  - Onychomycosis [Unknown]
  - Tooth extraction [Unknown]
  - Dental caries [Unknown]
  - Vitamin D decreased [Unknown]
